FAERS Safety Report 5695857-0 (Version None)
Quarter: 2008Q2

REPORT INFORMATION
  Report Type: 
  Country: None (occurrence: None)
  Receive Date: 20080407
  Receipt Date: 20080325
  Transmission Date: 20081010
  Serious: Yes (Other)
  Sender: FDA-Public Use
  Company Number: US-ROCHE-512844

PATIENT
  Sex: Male
  Weight: 72.6 kg

DRUGS (11)
  1. ACCUTANE [Suspect]
     Indication: ACNE
     Route: 048
     Dates: start: 19991203, end: 20000519
  2. BIAXIN [Concomitant]
  3. ERYTHROMYCIN [Concomitant]
     Indication: SKIN INFECTION
  4. TOBRADEX [Concomitant]
     Indication: EYE INFECTION
  5. TOBRADEX [Concomitant]
  6. HYDROCODONE BITARTRATE [Concomitant]
  7. AUGMENTIN '125' [Concomitant]
     Indication: INFECTION
  8. AUGMENTIN '125' [Concomitant]
  9. ZITHROMAX [Concomitant]
  10. NASACORT [Concomitant]
  11. AMOXICILLIN [Concomitant]

REACTIONS (16)
  - ANAL ABSCESS [None]
  - ANAL FISTULA [None]
  - ANXIETY [None]
  - CROHN'S DISEASE [None]
  - DEPRESSION [None]
  - GASTROINTESTINAL DISORDER [None]
  - GASTROOESOPHAGEAL REFLUX DISEASE [None]
  - HAEMATOCHEZIA [None]
  - ILEITIS [None]
  - ILEUS [None]
  - INFLAMMATORY BOWEL DISEASE [None]
  - INGUINAL HERNIA [None]
  - INTESTINAL OBSTRUCTION [None]
  - IRON DEFICIENCY ANAEMIA [None]
  - RECTAL HAEMORRHAGE [None]
  - UMBILICAL HERNIA [None]
